FAERS Safety Report 9551788 (Version 1)
Quarter: 2013Q3

REPORT INFORMATION
  Report Type: Report from Study
  Country: ZA (occurrence: ZA)
  Receive Date: 20130925
  Receipt Date: 20130925
  Transmission Date: 20140515
  Serious: Yes (Hospitalization)
  Sender: FDA-Public Use
  Company Number: ZA-SANOFI-AVENTIS-2013SA092962

PATIENT
  Age: 0 Day
  Sex: Male
  Weight: 2.6 kg

DRUGS (2)
  1. LANTUS SOLOSTAR [Suspect]
     Indication: MATERNAL EXPOSURE TIMING UNSPECIFIED
     Dosage: DOSE:12 UNIT(S)
     Route: 064
     Dates: start: 201206
  2. APIDRA SOLOSTAR [Suspect]
     Indication: MATERNAL EXPOSURE TIMING UNSPECIFIED
     Dosage: DOSE:48 UNIT(S)
     Route: 064
     Dates: start: 201206

REACTIONS (2)
  - Adverse event [Recovered/Resolved]
  - Foetal exposure during pregnancy [Unknown]
